FAERS Safety Report 16657981 (Version 1)
Quarter: 2019Q3

REPORT INFORMATION
  Report Type: Report from Study
  Country: AT (occurrence: AT)
  Receive Date: 20190801
  Receipt Date: 20190801
  Transmission Date: 20191004
  Serious: Yes (Death, Hospitalization)
  Sender: FDA-Public Use
  Company Number: AT-ELI_LILLY_AND_COMPANY-AT201810011506

PATIENT
  Age: 54 Year
  Sex: Male
  Weight: 71 kg

DRUGS (34)
  1. GEMCITABINE HYDROCHLORIDE. [Suspect]
     Active Substance: GEMCITABINE HYDROCHLORIDE
     Indication: PANCREATIC CARCINOMA
     Dosage: 1849 MG/M2, UNKNOWN
     Route: 065
     Dates: start: 20180927
  2. GEMCITABINE HYDROCHLORIDE. [Suspect]
     Active Substance: GEMCITABINE HYDROCHLORIDE
     Dosage: 1485 MG/M2, UNKNOWN
     Route: 065
     Dates: start: 201810
  3. GEMCITABINE HYDROCHLORIDE. [Suspect]
     Active Substance: GEMCITABINE HYDROCHLORIDE
     Dosage: 1468 MG/M2, UNKNOWN
     Route: 065
     Dates: start: 20181128
  4. ABRAXANE [Suspect]
     Active Substance: PACLITAXEL
     Dosage: 229 MG/M2, UNK
     Route: 041
     Dates: start: 201901
  5. ABRAXANE [Suspect]
     Active Substance: PACLITAXEL
     Dosage: 227 MG/M2, UNKNOWN
     Route: 041
     Dates: start: 201902
  6. XALATAN [Concomitant]
     Active Substance: LATANOPROST
     Indication: GLAUCOMA
     Dosage: UNK, UNKNOWN
     Route: 047
  7. GEMCITABINE HYDROCHLORIDE. [Suspect]
     Active Substance: GEMCITABINE HYDROCHLORIDE
     Dosage: 1530 MG/M2, UNKNOWN
     Route: 065
     Dates: start: 201810
  8. GEMCITABINE HYDROCHLORIDE. [Suspect]
     Active Substance: GEMCITABINE HYDROCHLORIDE
     Dosage: 1483 MG/M2, UNK
     Route: 065
     Dates: start: 20181030
  9. GEMCITABINE HYDROCHLORIDE. [Suspect]
     Active Substance: GEMCITABINE HYDROCHLORIDE
     Dosage: 1471 MG/M2, UNK
     Route: 065
     Dates: start: 20181128
  10. GEMCITABINE HYDROCHLORIDE. [Suspect]
     Active Substance: GEMCITABINE HYDROCHLORIDE
     Dosage: 1500 MG/M2, UNKNOWN
     Route: 065
     Dates: start: 201905
  11. ABRAXANE [Suspect]
     Active Substance: PACLITAXEL
     Dosage: 230 MG/M2, UNK
     Route: 041
     Dates: start: 20190125
  12. GEMCITABINE HYDROCHLORIDE. [Suspect]
     Active Substance: GEMCITABINE HYDROCHLORIDE
     Dosage: 1468 MG/M2, UNKNOWN
     Route: 065
     Dates: start: 201812
  13. ABRAXANE [Suspect]
     Active Substance: PACLITAXEL
     Indication: PANCREATIC CARCINOMA
     Dosage: 233 MG/M2, UNKNOWN
     Route: 041
     Dates: start: 20180927
  14. ABRAXANE [Suspect]
     Active Substance: PACLITAXEL
     Dosage: 233 MG/M2, UNKNOWN
     Route: 041
     Dates: start: 20181030
  15. TRITTICO [Concomitant]
     Active Substance: TRAZODONE HYDROCHLORIDE
     Indication: PRODUCT USED FOR UNKNOWN INDICATION
     Dosage: UNK UNK, UNKNOWN
     Route: 048
  16. GEMCITABINE HYDROCHLORIDE. [Suspect]
     Active Substance: GEMCITABINE HYDROCHLORIDE
     Dosage: 1522 MG/M2, UNK
     Route: 065
     Dates: start: 20181228
  17. GEMCITABINE HYDROCHLORIDE. [Suspect]
     Active Substance: GEMCITABINE HYDROCHLORIDE
     Dosage: 1504 MG/M2, UNK
     Route: 065
     Dates: start: 201901
  18. GEMCITABINE HYDROCHLORIDE. [Suspect]
     Active Substance: GEMCITABINE HYDROCHLORIDE
     Dosage: 1515 MG/M2, UNKNOWN
     Route: 065
     Dates: start: 2019
  19. ABRAXANE [Suspect]
     Active Substance: PACLITAXEL
     Dosage: UNK UNK, UNKNOWN
     Route: 041
     Dates: start: 2018
  20. GEMCITABINE HYDROCHLORIDE. [Suspect]
     Active Substance: GEMCITABINE HYDROCHLORIDE
     Dosage: 1480 MG/M2, UNKNOWN
     Route: 065
     Dates: start: 20190325
  21. GEMCITABINE HYDROCHLORIDE. [Suspect]
     Active Substance: GEMCITABINE HYDROCHLORIDE
     Dosage: 1485 MG/M2, UNKNOWN
     Route: 065
     Dates: start: 201811
  22. GEMCITABINE HYDROCHLORIDE. [Suspect]
     Active Substance: GEMCITABINE HYDROCHLORIDE
     Dosage: 1511 MG/M2, UNKNOWN
     Route: 065
     Dates: start: 20190403
  23. GEMCITABINE HYDROCHLORIDE. [Suspect]
     Active Substance: GEMCITABINE HYDROCHLORIDE
     Dosage: 1481 MG/M2, UNKNOWN
     Route: 065
     Dates: start: 20190125
  24. GEMCITABINE HYDROCHLORIDE. [Suspect]
     Active Substance: GEMCITABINE HYDROCHLORIDE
     Dosage: 1511 MG/M2, UNK
     Route: 065
     Dates: start: 201902
  25. GEMCITABINE HYDROCHLORIDE. [Suspect]
     Active Substance: GEMCITABINE HYDROCHLORIDE
     Dosage: 1474 MG/M2, UNKNOWN
     Route: 065
     Dates: start: 20190225
  26. GEMCITABINE HYDROCHLORIDE. [Suspect]
     Active Substance: GEMCITABINE HYDROCHLORIDE
     Dosage: 1474 MG/M2, UNKNOWN
     Route: 065
     Dates: start: 20190423
  27. ABRAXANE [Suspect]
     Active Substance: PACLITAXEL
     Dosage: 233 MG/M2, UNK
     Route: 041
     Dates: start: 20181128
  28. ENALAPRIL MALEATE. [Concomitant]
     Active Substance: ENALAPRIL MALEATE
     Indication: HYPERTENSION
     Dosage: 10 MG, UNKNOWN
     Route: 048
  29. ABRAXANE [Suspect]
     Active Substance: PACLITAXEL
     Dosage: 231 MG/M2, UNKNOWN
     Route: 041
     Dates: start: 20190225
  30. ABRAXANE [Suspect]
     Active Substance: PACLITAXEL
     Dosage: UNK, UNKNOWN
     Route: 041
     Dates: start: 20190628
  31. KREON [Concomitant]
     Active Substance: PANCRELIPASE
     Indication: PANCREATIC FAILURE
     Dosage: UNK, DAILY
     Route: 048
  32. ABRAXANE [Suspect]
     Active Substance: PACLITAXEL
     Dosage: 233 MG/M2, UNKNOWN
     Route: 041
     Dates: start: 20181228
  33. ABRAXANE [Suspect]
     Active Substance: PACLITAXEL
     Dosage: 230 MG/M2, UNKNOWN
     Route: 041
     Dates: start: 201903
  34. DORZASTAD [Concomitant]
     Indication: PRODUCT USED FOR UNKNOWN INDICATION
     Dosage: UNK, UNKNOWN
     Route: 047

REACTIONS (17)
  - Thrombocytopenia [Recovered/Resolved]
  - Leukopenia [Recovered/Resolved]
  - Conjunctivitis [Recovered/Resolved]
  - Thrombocytopenia [Recovered/Resolved]
  - General physical health deterioration [Fatal]
  - Leukopenia [Recovered/Resolved]
  - Leukopenia [Recovered/Resolved]
  - Off label use [Unknown]
  - Alopecia [Fatal]
  - Neutropenia [Recovered/Resolved]
  - Cataract [Recovered/Resolved]
  - Pyrexia [Recovered/Resolved]
  - Thrombocytopenia [Recovered/Resolved]
  - Polyneuropathy [Fatal]
  - Rhinitis [Recovered/Resolved]
  - Thrombocytopenia [Recovered/Resolved]
  - Neutropenia [Recovered/Resolved]

NARRATIVE: CASE EVENT DATE: 20181005
